FAERS Safety Report 24135309 (Version 2)
Quarter: 2024Q3

REPORT INFORMATION
  Report Type: Spontaneous
  Country: IT (occurrence: IT)
  Receive Date: 20240725
  Receipt Date: 20240830
  Transmission Date: 20241017
  Serious: Yes (Other)
  Sender: CELLTRION
  Company Number: IT-CELLTRION INC.-2024IT017803

PATIENT

DRUGS (4)
  1. MABTHERA [Suspect]
     Active Substance: RITUXIMAB
     Indication: Glomerulonephritis membranous
     Dosage: 375 MG/M2 (B CELL-TARGETED)
     Dates: start: 201912
  2. MABTHERA [Suspect]
     Active Substance: RITUXIMAB
     Dosage: 375 MG/M2 (SECOND ADMINISTRATION)
  3. RITUXIMAB [Suspect]
     Active Substance: RITUXIMAB
     Indication: Glomerulonephritis membranous
     Dosage: 375 MG/M2 (B CELL-TARGETED)
     Dates: start: 201912
  4. RITUXIMAB [Suspect]
     Active Substance: RITUXIMAB
     Dosage: 375 MG/M2 (SECOND ADMINISTRATION)

REACTIONS (2)
  - Thrombosis in device [Unknown]
  - Drug effective for unapproved indication [Unknown]
